FAERS Safety Report 22262839 (Version 1)
Quarter: 2023Q2

REPORT INFORMATION
  Report Type: Spontaneous
  Country: IN (occurrence: IN)
  Receive Date: 20230428
  Receipt Date: 20230428
  Transmission Date: 20230722
  Serious: Yes (Other)
  Sender: FDA-Public Use
  Company Number: IN-SUN PHARMACEUTICAL INDUSTRIES LTD-2023R1-384708

PATIENT
  Age: 18 Year
  Sex: Female
  Weight: 30 kg

DRUGS (2)
  1. PHENYTOIN [Suspect]
     Active Substance: PHENYTOIN
     Indication: Epilepsy
     Dosage: 200 MILLIGRAM, DAILY
     Route: 065
  2. VALPROATE SODIUM [Concomitant]
     Active Substance: VALPROATE SODIUM
     Indication: Epilepsy
     Dosage: 600 MILLIGRAM, DAILY
     Route: 065

REACTIONS (2)
  - Pyramidal tract syndrome [Recovered/Resolved]
  - Toxicity to various agents [Unknown]
